FAERS Safety Report 7563706-1 (Version None)
Quarter: 2011Q2

REPORT INFORMATION
  Report Type: 
  Country: None (occurrence: None)
  Receive Date: 20110622
  Receipt Date: 20110610
  Transmission Date: 20111010
  Serious: Yes (Other)
  Sender: FDA-Public Use
  Company Number: PHHY2011TW51528

PATIENT
  Age: 43 Year
  Sex: Female

DRUGS (2)
  1. ZOLPIDEM [Suspect]
     Indication: INSOMNIA
     Dosage: 60 MG, 50 TO 60 MG
  2. ZOLPIDEM [Suspect]
     Dosage: 400 MG, 200-400 MG

REACTIONS (14)
  - FACIAL SPASM [None]
  - RESTLESSNESS [None]
  - INSOMNIA [None]
  - DISORIENTATION [None]
  - PSYCHOMOTOR RETARDATION [None]
  - DRUG TOLERANCE [None]
  - TONIC CONVULSION [None]
  - CONFUSIONAL STATE [None]
  - REGRESSIVE BEHAVIOUR [None]
  - DRUG DEPENDENCE [None]
  - WITHDRAWAL SYNDROME [None]
  - DEPRESSED LEVEL OF CONSCIOUSNESS [None]
  - ANXIETY [None]
  - LOSS OF CONSCIOUSNESS [None]
